FAERS Safety Report 16751172 (Version 1)
Quarter: 2019Q3

REPORT INFORMATION
  Report Type: Spontaneous
  Country: US (occurrence: US)
  Receive Date: 20190828
  Receipt Date: 20190828
  Transmission Date: 20191005
  Serious: No
  Sender: FDA-Public Use
  Company Number: US-ENDO PHARMACEUTICALS INC-2019-104548

PATIENT
  Age: 64 Year
  Sex: Female

DRUGS (1)
  1. CLONAZEPAM. [Suspect]
     Active Substance: CLONAZEPAM
     Indication: SEIZURE
     Dosage: UNK UNK, UNKNOWN
     Route: 048
     Dates: start: 1998

REACTIONS (12)
  - Teeth brittle [Unknown]
  - Drug withdrawal syndrome [Unknown]
  - Insomnia [Unknown]
  - Drug ineffective [Unknown]
  - Pseudostroke [Unknown]
  - Nervousness [Unknown]
  - Restless legs syndrome [Unknown]
  - Product substitution issue [Unknown]
  - Asthenia [Unknown]
  - Nausea [Unknown]
  - Dyspepsia [Unknown]
  - Soliloquy [Unknown]
